FAERS Safety Report 13156295 (Version 1)
Quarter: 2017Q1

REPORT INFORMATION
  Report Type: Spontaneous
  Country: CN (occurrence: CN)
  Receive Date: 20170126
  Receipt Date: 20170126
  Transmission Date: 20170428
  Serious: Yes (Other)
  Sender: FDA-Public Use
  Company Number: CN-PFIZER INC-2017032449

PATIENT
  Age: 52 Year
  Sex: Male
  Weight: 95 kg

DRUGS (4)
  1. ENDOXAN [Suspect]
     Active Substance: CYCLOPHOSPHAMIDE
     Indication: HEPATIC CANCER
     Dosage: 800 MG, 1X/DAY
     Route: 041
     Dates: start: 20160809, end: 20160810
  2. VINDESINE [Concomitant]
     Active Substance: VINDESINE
     Dosage: UNK
  3. PHARMORUBICIN [Suspect]
     Active Substance: EPIRUBICIN
     Indication: HEPATIC CANCER
     Dosage: 80 MG, 1X/DAY
     Route: 041
     Dates: start: 20160809, end: 20160810
  4. PREDNISONE. [Concomitant]
     Active Substance: PREDNISONE
     Dosage: UNK

REACTIONS (4)
  - Bone marrow failure [Recovering/Resolving]
  - Pyrexia [Recovering/Resolving]
  - Intestinal obstruction [Recovering/Resolving]
  - Sepsis [Recovering/Resolving]

NARRATIVE: CASE EVENT DATE: 20160820
